FAERS Safety Report 9704608 (Version 1)
Quarter: 2013Q4

REPORT INFORMATION
  Report Type: Spontaneous
  Country: IN (occurrence: IN)
  Receive Date: 20131122
  Receipt Date: 20131122
  Transmission Date: 20140711
  Serious: Yes (Death)
  Sender: FDA-Public Use
  Company Number: IN-JNJFOC-20131112438

PATIENT
  Age: 3 Year
  Sex: Male

DRUGS (4)
  1. INFLIXIMAB, RECOMBINANT [Suspect]
     Indication: GRAFT VERSUS HOST DISEASE
     Dosage: SINGLE DOSE
     Route: 042
  2. ANTI-THYMOCYTE GLOBULIN [Suspect]
     Indication: GRAFT VERSUS HOST DISEASE
     Dosage: 15 MG/KG FOR 3 DAYS
     Route: 065
  3. METHYLPREDNISOLONE [Suspect]
     Indication: GRAFT VERSUS HOST DISEASE
     Dosage: TAPERED DOSE
     Route: 065
  4. CAMPATH [Suspect]
     Indication: GRAFT VERSUS HOST DISEASE
     Route: 065

REACTIONS (2)
  - Pneumonia cytomegaloviral [Fatal]
  - Drug ineffective for unapproved indication [Unknown]
